FAERS Safety Report 5693896-7 (Version None)
Quarter: 2008Q2

REPORT INFORMATION
  Report Type: 
  Country: None (occurrence: None)
  Receive Date: 20080403
  Receipt Date: 20080322
  Transmission Date: 20081010
  Serious: Yes (Other)
  Sender: FDA-Public Use
  Company Number: US-PFIZER INC-2008013497

PATIENT
  Sex: Female
  Weight: 58.181 kg

DRUGS (4)
  1. CHANTIX [Suspect]
     Indication: SMOKING CESSATION THERAPY
     Route: 048
  2. TOFRANIL-PM [Concomitant]
  3. ORAL CONTRACEPTIVE NOS [Concomitant]
  4. ESTRADIOL [Concomitant]

REACTIONS (2)
  - HYPOAESTHESIA [None]
  - SYNCOPE [None]
